FAERS Safety Report 8977747 (Version 2)
Quarter: 2019Q3

REPORT INFORMATION
  Report Type: Report from Study
  Country: US (occurrence: US)
  Receive Date: 20121219
  Receipt Date: 20190919
  Transmission Date: 20191005
  Serious: Yes (Hospitalization)
  Sender: FDA-Public Use
  Company Number: PHHO2012US017481

PATIENT
  Age: 36 Year
  Sex: Female
  Weight: 91.7 kg

DRUGS (4)
  1. AFINITOR [Suspect]
     Active Substance: EVEROLIMUS
     Indication: BREAST CANCER METASTATIC
     Dosage: 7.5 MG, QD
     Route: 048
     Dates: start: 20120713, end: 20121025
  2. TRASTUZUMAB. [Suspect]
     Active Substance: TRASTUZUMAB
     Indication: BREAST CANCER METASTATIC
     Dosage: 2 MG/KG, UNK
     Route: 065
     Dates: start: 20120713, end: 20121019
  3. DEXAMETHASONE SANDOZ [Suspect]
     Active Substance: DEXAMETHASONE
     Indication: OEDEMA
     Dosage: 4 MG, QD
     Route: 065
     Dates: start: 20120613, end: 20121026
  4. VINORELBINE [Suspect]
     Active Substance: VINORELBINE TARTRATE
     Indication: BREAST CANCER METASTATIC
     Dosage: 25 MG/M2, QW
     Route: 065
     Dates: start: 20120713, end: 20121019

REACTIONS (3)
  - Pyrexia [Not Recovered/Not Resolved]
  - Adrenal insufficiency [Recovered/Resolved]
  - Pain [Not Recovered/Not Resolved]

NARRATIVE: CASE EVENT DATE: 20121026
